FAERS Safety Report 22267393 (Version 3)
Quarter: 2023Q2

REPORT INFORMATION
  Report Type: Spontaneous
  Country: US (occurrence: None)
  Receive Date: 20230428
  Receipt Date: 20230602
  Transmission Date: 20230722
  Serious: Yes (Other)
  Sender: FDA-Public Use
  Company Number: US-ROCHE-3340373

PATIENT
  Age: 52 Year
  Sex: Female
  Weight: 90.8 kg

DRUGS (9)
  1. OCREVUS [Suspect]
     Active Substance: OCRELIZUMAB
     Indication: Primary progressive multiple sclerosis
     Dosage: INFUSION DATES ARE 18/APR/2019, 24/OCT/2019, 28/MAY/2020, 20/NOV/2020, 21/MAY/2021, 22/NOV/2021
     Route: 042
     Dates: start: 201803
  2. OCREVUS [Suspect]
     Active Substance: OCRELIZUMAB
     Dosage: LAST INFUSION OCCURRED ON 19/DEC/22
     Route: 042
     Dates: start: 20211129
  3. GILENYA [Concomitant]
     Active Substance: FINGOLIMOD HYDROCHLORIDE
  4. TYSABRI [Concomitant]
     Active Substance: NATALIZUMAB
  5. METHYLPREDNISOLONE [Concomitant]
     Active Substance: METHYLPREDNISOLONE
     Dosage: ADMINISTER 125MG BY SLOW IV PUSH OVER 3-5 MINUTES, 60 MINUTES PRIOR TO INFUSION.
  6. ONDANSETRON [Concomitant]
     Active Substance: ONDANSETRON
     Dosage: ADMINISTER 4MG BY SLOW IV PUSH OVER SEVERAL MINUTES AS NEEDED FOR NAUSEA
  7. SODIUM CHLORIDE [Concomitant]
     Active Substance: SODIUM CHLORIDE
     Dosage: ADMINISTER 50ML OF NORMAL SALINE AT A RATE OF 50ML/HR FOR ONE HOUR POST INFUSION.
  8. DIPHENHYDRAMINE [Concomitant]
     Active Substance: DIPHENHYDRAMINE
     Dosage: TAKE 2 CAPSULES (50MG) BY MOUTH 60 MINUTES PRIOR TO EACH INFUSION.
  9. ACETAMINOPHEN [Concomitant]
     Active Substance: ACETAMINOPHEN
     Dosage: TAKE 2 TABLETS (650MG) BY MOUTH 60 MINUTES PRIOR TO EACH INFUSION.

REACTIONS (1)
  - Breast cancer [Unknown]

NARRATIVE: CASE EVENT DATE: 20230301
